FAERS Safety Report 20065911 (Version 1)
Quarter: 2021Q4

REPORT INFORMATION
  Report Type: Spontaneous
  Country: US (occurrence: None)
  Receive Date: 20211109
  Receipt Date: 20211109
  Transmission Date: 20220303
  Serious: Yes (Hospitalization)
  Sender: FDA-Public Use
  Company Number: None

PATIENT
  Age: 6 Month
  Sex: Male

DRUGS (4)
  1. PULMOZYME [Suspect]
     Active Substance: DORNASE ALFA
     Indication: Cystic fibrosis
     Dosage: DOSE: 2.5 MG/2.5ML?FREQUENCY : DAILY?
     Route: 055
     Dates: start: 20210930
  2. ALBUTEROL AER HFA [Concomitant]
  3. CREON CAP [Concomitant]
  4. MULTIVITAMIN LIQ [Concomitant]

REACTIONS (4)
  - Infection [None]
  - Rhinorrhoea [None]
  - Wheezing [None]
  - Cough [None]

NARRATIVE: CASE EVENT DATE: 20211023
